FAERS Safety Report 9928343 (Version 1)
Quarter: 2014Q1

REPORT INFORMATION
  Report Type: Report from Study
  Country: US (occurrence: US)
  Receive Date: 20140227
  Receipt Date: 20140227
  Transmission Date: 20141002
  Serious: Yes (Hospitalization)
  Sender: FDA-Public Use
  Company Number: US-ROCHE-1329838

PATIENT
  Age: 68 Year
  Sex: Male

DRUGS (7)
  1. LUCENTIS [Suspect]
     Indication: DIABETIC RETINOPATHY
     Route: 050
  2. LUCENTIS [Suspect]
     Indication: RETINAL OEDEMA
  3. LUCENTIS [Suspect]
     Indication: MACULAR OEDEMA
  4. TETRACAINE [Concomitant]
     Route: 061
  5. BETADINE [Concomitant]
  6. TOBRADEX [Concomitant]
     Route: 065
  7. VIGAMOX [Concomitant]
     Route: 047

REACTIONS (7)
  - Diabetes mellitus inadequate control [Unknown]
  - Fluid retention [Unknown]
  - Malaise [Unknown]
  - Macular oedema [Unknown]
  - Visual acuity reduced [Unknown]
  - Retinal neovascularisation [Unknown]
  - Malaise [Unknown]
